FAERS Safety Report 23868465 (Version 1)
Quarter: 2024Q2

REPORT INFORMATION
  Report Type: Spontaneous
  Country: JP (occurrence: None)
  Receive Date: 20240517
  Receipt Date: 20240517
  Transmission Date: 20240716
  Serious: Yes (Other)
  Sender: FDA-Public Use
  Company Number: 2024A109895

PATIENT
  Age: 83 Year
  Sex: Female

DRUGS (2)
  1. BENRALIZUMAB [Suspect]
     Active Substance: BENRALIZUMAB
     Indication: Asthma
     Route: 058
  2. BENRALIZUMAB [Suspect]
     Active Substance: BENRALIZUMAB
     Indication: Bronchopulmonary aspergillosis allergic
     Route: 058

REACTIONS (3)
  - Osteoporosis [Unknown]
  - Diabetes mellitus [Unknown]
  - Bronchopulmonary aspergillosis allergic [Unknown]
